FAERS Safety Report 7626729-X (Version None)
Quarter: 2011Q3

REPORT INFORMATION
  Report Type: 
  Country: None (occurrence: None)
  Receive Date: 20110714
  Receipt Date: 20110711
  Transmission Date: 20111222
  Serious: Yes (Death)
  Sender: FDA-Public Use
  Company Number: 201110136

PATIENT
  Age: 60 Year
  Sex: Male

DRUGS (1)
  1. LIORESAL [Suspect]
     Indication: MUSCLE SPASTICITY
     Dosage: 145.7 MCG, DAILY, INTRATHECAL
     Route: 037

REACTIONS (4)
  - MYOCARDIAL INFARCTION [None]
  - PAIN [None]
  - MUSCLE SPASTICITY [None]
  - PROCEDURAL PAIN [None]
